FAERS Safety Report 20678794 (Version 1)
Quarter: 2022Q2

REPORT INFORMATION
  Report Type: Spontaneous
  Country: US (occurrence: US)
  Receive Date: 20220406
  Receipt Date: 20220406
  Transmission Date: 20220721
  Serious: Yes (Hospitalization, Other)
  Sender: FDA-Public Use
  Company Number: US-MYLANLABS-2022M1025210

PATIENT
  Age: 43 Year
  Sex: Female

DRUGS (5)
  1. FLUOROURACIL [Suspect]
     Active Substance: FLUOROURACIL
     Indication: Colon cancer
     Dosage: UNK, CYCLE
     Route: 065
  2. FLUOROURACIL [Suspect]
     Active Substance: FLUOROURACIL
     Indication: Metastatic neoplasm
  3. LEUCOVORIN [Concomitant]
     Active Substance: LEUCOVORIN
     Indication: Colon cancer
     Dosage: UNK, CYCLE ADMINISTERED UNDER THE FOLFOX CHEMOTHERAPY REGIMEN
     Route: 065
  4. OXALIPLATIN [Concomitant]
     Active Substance: OXALIPLATIN
     Indication: Colon cancer
     Dosage: UNK, CYCLE(ADMINISTERED UNDER THE FOLFOX CHEMOTHERAPY REGIMEN)
     Route: 065
  5. CETUXIMAB [Concomitant]
     Active Substance: CETUXIMAB
     Indication: Colon cancer
     Dosage: UNK
     Route: 065

REACTIONS (4)
  - Microvascular coronary artery disease [Unknown]
  - Endothelial dysfunction [Unknown]
  - Pericardial effusion [Recovered/Resolved]
  - Myopericarditis [Recovered/Resolved]
